FAERS Safety Report 23727316 (Version 1)
Quarter: 2024Q2

REPORT INFORMATION
  Report Type: Spontaneous
  Country: US (occurrence: US)
  Receive Date: 20240410
  Receipt Date: 20240410
  Transmission Date: 20240715
  Serious: No
  Sender: FDA-Public Use
  Company Number: US-Walmart Premier Brands of America-2155379

PATIENT
  Age: 68 Year
  Sex: Female
  Weight: 79.5 kg

DRUGS (9)
  1. BURN RELIEF [Suspect]
     Active Substance: LIDOCAINE
     Indication: Application site burn
     Route: 003
     Dates: start: 20240317, end: 20240317
  2. LEVOTHYROXINE [Concomitant]
     Active Substance: LEVOTHYROXINE\LEVOTHYROXINE SODIUM
     Route: 048
  3. LEVOTHYROXINE [Concomitant]
     Active Substance: LEVOTHYROXINE\LEVOTHYROXINE SODIUM
     Route: 048
  4. MUPIROCIN [Concomitant]
     Active Substance: MUPIROCIN
     Dates: start: 20240322
  5. CEFADROXIL [Concomitant]
     Active Substance: CEFADROXIL
     Dates: start: 20240322
  6. MELALEUCA [Concomitant]
     Active Substance: MELALEUCA QUINQUENERVIA POLLEN
     Route: 061
  7. NEOSPORIN [Concomitant]
     Active Substance: BACITRACIN ZINC\NEOMYCIN SULFATE\POLYMYXIN B SULFATE
     Route: 061
  8. BUPROPION HYDROCHLORIDE [Concomitant]
     Active Substance: BUPROPION HYDROCHLORIDE
     Route: 048
  9. PRAVASTATIN [Concomitant]
     Active Substance: PRAVASTATIN
     Route: 048

REACTIONS (2)
  - Burn infection [Recovering/Resolving]
  - Cellulitis [Recovering/Resolving]

NARRATIVE: CASE EVENT DATE: 20240317
